FAERS Safety Report 11132095 (Version 1)
Quarter: 2015Q2

REPORT INFORMATION
  Report Type: Spontaneous
  Country: US (occurrence: US)
  Receive Date: 20150522
  Receipt Date: 20150522
  Transmission Date: 20150821
  Serious: Yes (Hospitalization)
  Sender: FDA-Public Use
  Company Number: US-JNJFOC-20150509451

PATIENT
  Age: 89 Year

DRUGS (2)
  1. XARELTO [Suspect]
     Active Substance: RIVAROXABAN
     Indication: CEREBROVASCULAR ACCIDENT PROPHYLAXIS
     Route: 048
     Dates: start: 201301, end: 201303
  2. XARELTO [Suspect]
     Active Substance: RIVAROXABAN
     Indication: ATRIAL FIBRILLATION
     Route: 048
     Dates: start: 201301, end: 201303

REACTIONS (5)
  - Hiatus hernia [Unknown]
  - Gastrointestinal haemorrhage [Unknown]
  - Diverticulum intestinal haemorrhagic [Unknown]
  - Haemorrhagic anaemia [Unknown]
  - Gastric polyps [Unknown]

NARRATIVE: CASE EVENT DATE: 201303
